FAERS Safety Report 13641261 (Version 1)
Quarter: 2017Q2

REPORT INFORMATION
  Report Type: Spontaneous
  Country: US (occurrence: US)
  Receive Date: 20170609
  Receipt Date: 20170609
  Transmission Date: 20170830
  Serious: Yes (Other)
  Sender: FDA-Public Use
  Company Number: None

PATIENT
  Age: 60 Year
  Sex: Female
  Weight: 72 kg

DRUGS (7)
  1. ASA [Concomitant]
     Active Substance: ASPIRIN
  2. CETIRIZINE [Suspect]
     Active Substance: CETIRIZINE HYDROCHLORIDE
     Indication: MULTIPLE ALLERGIES
     Dosage: ?          QUANTITY:200 TABLET(S);?
     Route: 048
     Dates: start: 20170525, end: 20170529
  3. ATENOLOL. [Concomitant]
     Active Substance: ATENOLOL
  4. CINNAMON. [Concomitant]
     Active Substance: CINNAMON
  5. JANUMET [Concomitant]
     Active Substance: METFORMIN HYDROCHLORIDE\SITAGLIPTIN PHOSPHATE
  6. LEXAPRO [Concomitant]
     Active Substance: ESCITALOPRAM OXALATE
  7. LOSARTIN [Concomitant]
     Active Substance: LOSARTAN

REACTIONS (3)
  - Dizziness [None]
  - Product substitution issue [None]
  - Suspected product contamination [None]

NARRATIVE: CASE EVENT DATE: 20170601
